FAERS Safety Report 16453703 (Version 1)
Quarter: 2019Q2

REPORT INFORMATION
  Report Type: Spontaneous
  Country: JP (occurrence: JP)
  Receive Date: 20190620
  Receipt Date: 20190620
  Transmission Date: 20190711
  Serious: Yes (Hospitalization, Other)
  Sender: FDA-Public Use
  Company Number: JP-SECURA BIO, INC.-2019JP005727

PATIENT

DRUGS (7)
  1. FARYDAK [Suspect]
     Active Substance: PANOBINOSTAT
     Dosage: 10 MG, DAILY
     Route: 048
     Dates: start: 20160309, end: 20160405
  2. FARYDAK [Suspect]
     Active Substance: PANOBINOSTAT
     Dosage: 20 MG, DAILY
     Route: 048
     Dates: start: 201709, end: 201806
  3. FARYDAK [Suspect]
     Active Substance: PANOBINOSTAT
     Dosage: 10 MG, DAILY
     Route: 048
     Dates: start: 20151110, end: 20160308
  4. BORTEZOMIB. [Suspect]
     Active Substance: BORTEZOMIB
     Indication: PLASMA CELL MYELOMA
  5. DEXAMETHASONE. [Suspect]
     Active Substance: DEXAMETHASONE
     Indication: PLASMA CELL MYELOMA
  6. FARYDAK [Suspect]
     Active Substance: PANOBINOSTAT
     Dosage: 10 MG, DAILY
     Route: 048
     Dates: start: 20160511, end: 20160831
  7. FARYDAK [Suspect]
     Active Substance: PANOBINOSTAT
     Indication: PLASMA CELL MYELOMA
     Dosage: 20 MG, DAILY
     Route: 048
     Dates: start: 20151014, end: 20151109

REACTIONS (5)
  - Blood immunoglobulin G increased [Recovering/Resolving]
  - Dizziness [Recovered/Resolved]
  - Recurrent cancer [Recovering/Resolving]
  - Decreased appetite [Recovered/Resolved]
  - Plasma cell myeloma [Recovering/Resolving]

NARRATIVE: CASE EVENT DATE: 20170905
